FAERS Safety Report 9393484 (Version 2)
Quarter: 2013Q4

REPORT INFORMATION
  Report Type: Spontaneous
  Country: GB (occurrence: GB)
  Receive Date: 20130710
  Receipt Date: 20131125
  Transmission Date: 20140711
  Serious: Yes (Death)
  Sender: FDA-Public Use
  Company Number: PHHY2013GB072147

PATIENT
  Age: 69 Year
  Sex: Female

DRUGS (8)
  1. OLANZAPINE [Suspect]
     Dosage: 10 MG, QD, EACH EVENING
  2. SERTRALINE [Suspect]
     Dosage: 150 MG, QD
  3. AMLODIPINE [Concomitant]
     Dosage: 5 MG, QD
  4. ASPIRIN [Concomitant]
     Dosage: 75 MG, QD
  5. CALCICHEW [Concomitant]
     Dosage: UNK
  6. CARBIMAZOLE [Concomitant]
     Dosage: 5 MG, QD
  7. DIAZEPAM [Concomitant]
     Dosage: 1 MG, QD, EACH EVENING
  8. SIMVASTATIN [Concomitant]
     Dosage: 40 MG, QD, EACH EVENING

REACTIONS (3)
  - Death [Fatal]
  - Fall [Fatal]
  - Drug level increased [Unknown]
